FAERS Safety Report 15121509 (Version 1)
Quarter: 2018Q3

REPORT INFORMATION
  Report Type: Report from Study
  Country: AU (occurrence: AU)
  Receive Date: 20180709
  Receipt Date: 20180709
  Transmission Date: 20181010
  Serious: Yes (Hospitalization)
  Sender: FDA-Public Use
  Company Number: AU-US WORLDMEDS, LLC-USW201807-001037

PATIENT
  Age: 82 Year
  Sex: Male

DRUGS (1)
  1. APOMORPHINE HYDROCHLORIDE [Suspect]
     Active Substance: APOMORPHINE HYDROCHLORIDE
     Indication: PRODUCT USED FOR UNKNOWN INDICATION
     Dates: end: 20180629

REACTIONS (7)
  - Incorrect dose administered [Unknown]
  - Cognitive disorder [Unknown]
  - Infection [Unknown]
  - Malaise [Unknown]
  - Somnolence [Unknown]
  - Lethargy [Unknown]
  - Circumstance or information capable of leading to device use error [Unknown]

NARRATIVE: CASE EVENT DATE: 201806
